FAERS Safety Report 17126230 (Version 2)
Quarter: 2019Q4

REPORT INFORMATION
  Report Type: Spontaneous
  Country: US (occurrence: US)
  Receive Date: 20191209
  Receipt Date: 20191212
  Transmission Date: 20200122
  Serious: No
  Sender: FDA-Public Use
  Company Number: US-ELI_LILLY_AND_COMPANY-US201912002938

PATIENT
  Age: 69 Year
  Sex: Male

DRUGS (3)
  1. HUMALOG [Suspect]
     Active Substance: INSULIN LISPRO
     Indication: STEROID DIABETES
     Dosage: 6 U, PRN (2-6 UNITS PER MEAL)
     Route: 065
     Dates: start: 20191013
  2. INSULIN GLARGINE [Suspect]
     Active Substance: INSULIN GLARGINE
     Indication: STEROID DIABETES
     Dosage: 6 U, UNKNOWN (2,4.6 UNITS)
     Route: 065
  3. HUMALOG [Suspect]
     Active Substance: INSULIN LISPRO
     Dosage: 14 U, DAILY
     Route: 065

REACTIONS (3)
  - Product storage error [Unknown]
  - Blood glucose increased [Unknown]
  - Incorrect product administration duration [Unknown]
